FAERS Safety Report 6749860-X (Version None)
Quarter: 2010Q2

REPORT INFORMATION
  Report Type: 
  Country: None (occurrence: None)
  Receive Date: 20100527
  Receipt Date: 20100527
  Transmission Date: 20101027
  Serious: Yes (Life-Threatening, Other)
  Sender: FDA-Public Use
  Company Number: None

PATIENT
  Age: 26 Year
  Sex: Female
  Weight: 72.5755 kg

DRUGS (3)
  1. ORTHO EVRA [Suspect]
     Indication: OVARIAN CYST
     Dosage: 1 PATCH WEEKLY TOP
     Route: 061
     Dates: start: 20100523, end: 20100525
  2. ORTHO EVRA [Suspect]
     Indication: PREGNANCY
     Dosage: 1 PATCH WEEKLY TOP
     Route: 061
     Dates: start: 20100523, end: 20100525
  3. ORTHO EVRA [Suspect]
     Indication: PROPHYLAXIS
     Dosage: 1 PATCH WEEKLY TOP
     Route: 061
     Dates: start: 20100523, end: 20100525

REACTIONS (4)
  - DECREASED APPETITE [None]
  - DEPRESSION [None]
  - HEADACHE [None]
  - SUICIDAL IDEATION [None]
